FAERS Safety Report 6536838-4 (Version None)
Quarter: 2010Q1

REPORT INFORMATION
  Report Type: 
  Country: None (occurrence: None)
  Receive Date: 20100107
  Receipt Date: 20091223
  Transmission Date: 20100710
  Serious: Yes (Life-Threatening, Hospitalization)
  Sender: FDA-Public Use
  Company Number: 20090027USST

PATIENT
  Age: 43 Year
  Sex: Male

DRUGS (2)
  1. PROCARBAZINE CAPSULES [Suspect]
     Indication: HODGKIN'S DISEASE
  2. CHLORAMBUCIL [Suspect]
     Indication: HODGKIN'S DISEASE

REACTIONS (4)
  - DIALYSIS [None]
  - HYPOTENSION [None]
  - RESPIRATORY FAILURE [None]
  - STREPTOCOCCAL SEPSIS [None]
